FAERS Safety Report 10040813 (Version 2)
Quarter: 2014Q2

REPORT INFORMATION
  Report Type: Spontaneous
  Country: IT (occurrence: IT)
  Receive Date: 20140327
  Receipt Date: 20140515
  Transmission Date: 20141212
  Serious: Yes (Other)
  Sender: FDA-Public Use
  Company Number: IT-JNJFOC-20140310736

PATIENT
  Age: 43 Year
  Sex: Male
  Weight: 75 kg

DRUGS (4)
  1. RISPERDAL [Suspect]
     Indication: DEPRESSION
     Dosage: 8 TABLETS X 4MG AT ONCE
     Route: 048
     Dates: start: 20140316, end: 20140316
  2. RIVOTRIL [Suspect]
     Indication: DEPRESSION
     Dosage: 10 TABLETS X 0.5MG AT ONCE
     Route: 048
     Dates: start: 20140316, end: 20140316
  3. PAROXETINE [Suspect]
     Indication: DEPRESSION
     Route: 048
     Dates: start: 20140316, end: 20140316
  4. ALCOHOL [Suspect]
     Indication: PRODUCT USED FOR UNKNOWN INDICATION
     Dosage: THREE CANS OF BEER
     Route: 065
     Dates: start: 20140316

REACTIONS (4)
  - Self injurious behaviour [Recovering/Resolving]
  - Alcohol abuse [Recovering/Resolving]
  - Substance abuse [Recovering/Resolving]
  - Off label use [Unknown]
